FAERS Safety Report 14171048 (Version 1)
Quarter: 2017Q4

REPORT INFORMATION
  Report Type: Spontaneous
  Country: US (occurrence: US)
  Receive Date: 20171108
  Receipt Date: 20171108
  Transmission Date: 20180321
  Serious: Yes (Hospitalization)
  Sender: FDA-Public Use
  Company Number: US-SA-2017SA216221

PATIENT
  Age: 46 Year
  Sex: Female

DRUGS (5)
  1. AUBAGIO [Suspect]
     Active Substance: TERIFLUNOMIDE
     Indication: MULTIPLE SCLEROSIS
     Route: 048
     Dates: start: 20170419
  2. TOPAMAX [Concomitant]
     Active Substance: TOPIRAMATE
  3. PROTONIX [Concomitant]
     Active Substance: PANTOPRAZOLE SODIUM
  4. MAXALT [Concomitant]
     Active Substance: RIZATRIPTAN BENZOATE
  5. OMEPRAZOLE. [Concomitant]
     Active Substance: OMEPRAZOLE

REACTIONS (2)
  - Nephrolithiasis [Unknown]
  - Herpes zoster [Unknown]

NARRATIVE: CASE EVENT DATE: 2017
